FAERS Safety Report 16911238 (Version 1)
Quarter: 2019Q4

REPORT INFORMATION
  Report Type: Report from Study
  Country: None (occurrence: US)
  Receive Date: 20191012
  Receipt Date: 20191012
  Transmission Date: 20200122
  Serious: Yes (Hospitalization, Other)
  Sender: FDA-Public Use
  Company Number: US-ABBVIE-19K-163-2955130-00

PATIENT
  Sex: Female

DRUGS (2)
  1. CREON [Suspect]
     Active Substance: PANCRELIPASE AMYLASE\PANCRELIPASE LIPASE\PANCRELIPASE PROTEASE
     Dosage: 2 CAPSULES 2 TIMES DAILY WITH MEALS AND 1 CAPSULE WITH SNACKS
     Route: 048
     Dates: start: 201909
  2. CREON [Suspect]
     Active Substance: PANCRELIPASE AMYLASE\PANCRELIPASE LIPASE\PANCRELIPASE PROTEASE
     Indication: PANCREATECTOMY
     Dosage: 2 CAPSULE 3 TIMES A DAY WITH EACH MEAL AND 2 CAPS WITH SNACKS
     Route: 048
     Dates: start: 201902, end: 201906

REACTIONS (9)
  - Abdominal pain [Unknown]
  - Constipation [Not Recovered/Not Resolved]
  - Splenectomy [Unknown]
  - Blood glucose increased [Not Recovered/Not Resolved]
  - Diarrhoea [Not Recovered/Not Resolved]
  - Hepatic enzyme increased [Not Recovered/Not Resolved]
  - Pancreatectomy [Unknown]
  - Cholecystectomy [Unknown]
  - Wrong technique in product usage process [Not Recovered/Not Resolved]

NARRATIVE: CASE EVENT DATE: 2019
